FAERS Safety Report 16339518 (Version 3)
Quarter: 2019Q3

REPORT INFORMATION
  Report Type: Spontaneous
  Country: US (occurrence: US)
  Receive Date: 20190521
  Receipt Date: 20190703
  Transmission Date: 20191004
  Serious: No
  Sender: FDA-Public Use
  Company Number: US-SA-2019SA136846

PATIENT
  Age: 59 Year
  Sex: Male

DRUGS (12)
  1. SALMON OIL [Concomitant]
     Active Substance: FISH OIL
     Dosage: 1000 MG, QD
     Route: 048
  2. SUPER B COMPLEX [ASCORBIC ACID;BIOTIN;CALCIUM PANTOTHENATE;CHOLINE BIT [Concomitant]
     Dosage: UNK UNK, QD
     Route: 048
  3. VITAMIN D3 [Concomitant]
     Active Substance: CHOLECALCIFEROL
     Dosage: 5000 IU, QD
     Route: 048
  4. TURMERIC ROOT EXTRACT [Concomitant]
     Dosage: 1000 MG, QD
     Route: 048
  5. IRON [Concomitant]
     Active Substance: IRON
     Dosage: 65 MG, QD
     Route: 048
  6. OLIVE OIL [Concomitant]
     Active Substance: OLIVE OIL
  7. PSYLLIUM FIBRE [Concomitant]
     Dosage: UNK UNK, QD
     Route: 048
  8. BIOTIN [Concomitant]
     Active Substance: BIOTIN
     Dosage: 5 UG, QD
     Route: 048
  9. PROBIOTIC 30 BILLION [Concomitant]
     Dosage: UNK UNK, QD
     Route: 048
  10. VITAMIN B12 [Concomitant]
     Active Substance: CYANOCOBALAMIN
     Dosage: 5 UG, QD
     Route: 048
  11. CETAPHIL [CETYL ALCOHOL;PROPYLENE GLYCOL;SODIUM LAURYL SULFATE;STEARYL [Concomitant]
  12. DUPIXENT [Suspect]
     Active Substance: DUPILUMAB
     Indication: DERMATITIS ATOPIC
     Dosage: 300 MG, QOW
     Route: 058
     Dates: start: 20181010

REACTIONS (4)
  - Pruritus [Not Recovered/Not Resolved]
  - Alopecia [Not Recovered/Not Resolved]
  - Weight increased [Recovered/Resolved]
  - Dry skin [Not Recovered/Not Resolved]

NARRATIVE: CASE EVENT DATE: 2019
